FAERS Safety Report 21403074 (Version 1)
Quarter: 2022Q4

REPORT INFORMATION
  Report Type: Spontaneous
  Country: US (occurrence: US)
  Receive Date: 20221003
  Receipt Date: 20221003
  Transmission Date: 20230113
  Serious: No
  Sender: FDA-Public Use
  Company Number: US-RISING PHARMA HOLDINGS, INC.-2021RIS000073

PATIENT
  Age: 74 Year
  Sex: Female

DRUGS (1)
  1. HYDROCORTISONE [Suspect]
     Active Substance: HYDROCORTISONE
     Indication: Haemorrhoids
     Dosage: 2.5 PERCENT
     Route: 054

REACTIONS (3)
  - Drug ineffective for unapproved indication [Recovered/Resolved]
  - Incorrect route of product administration [None]
  - Product physical consistency issue [None]
